FAERS Safety Report 10045239 (Version 1)
Quarter: 2014Q1

REPORT INFORMATION
  Report Type: Report from Study
  Country: JP (occurrence: JP)
  Receive Date: 20140328
  Receipt Date: 20140328
  Transmission Date: 20141002
  Serious: Yes (Hospitalization)
  Sender: FDA-Public Use
  Company Number: JP-BAYER-2014-046678

PATIENT
  Age: 79 Year
  Sex: Male
  Weight: 67 kg

DRUGS (3)
  1. STIVARGA [Suspect]
     Indication: RECTAL CANCER
     Dosage: 120 MG, QD
     Route: 048
     Dates: start: 20140109, end: 20140123
  2. AMLODIPINE [Concomitant]
     Indication: PROPHYLAXIS
     Dosage: DAILY DOSE 7.5 MG
     Route: 048
  3. NU-LOTAN [Concomitant]
     Indication: PROPHYLAXIS
     Dosage: DAILY DOSE 25 MG
     Route: 048

REACTIONS (2)
  - Nephrotic syndrome [Recovering/Resolving]
  - Proteinuria [Not Recovered/Not Resolved]
